FAERS Safety Report 8962527 (Version 5)
Quarter: 2016Q2

REPORT INFORMATION
  Report Type: Spontaneous
  Country: US (occurrence: US)
  Receive Date: 20121213
  Receipt Date: 20160504
  Transmission Date: 20160815
  Serious: Yes (Other)
  Sender: FDA-Public Use
  Company Number: US-009507513-1212USA002775

PATIENT
  Sex: Male
  Weight: 113.38 kg

DRUGS (3)
  1. PROPECIA [Suspect]
     Active Substance: FINASTERIDE
     Indication: ANDROGENETIC ALOPECIA
     Dosage: 1 MG, UNK
     Route: 048
     Dates: start: 19990501, end: 20060626
  2. PRINIVIL [Concomitant]
     Active Substance: LISINOPRIL
     Dosage: UNK
     Route: 048
     Dates: start: 199905, end: 200709
  3. LIPITOR [Concomitant]
     Active Substance: ATORVASTATIN CALCIUM
     Indication: BLOOD CHOLESTEROL INCREASED
     Dosage: UNK
     Dates: start: 199905, end: 200602

REACTIONS (9)
  - Cognitive disorder [Not Recovered/Not Resolved]
  - Hypertension [Unknown]
  - Sexual dysfunction [Not Recovered/Not Resolved]
  - Diabetes mellitus inadequate control [Unknown]
  - Erectile dysfunction [Unknown]
  - Dermatitis contact [Unknown]
  - Facial paralysis [Recovered/Resolved]
  - Hypothyroidism [Unknown]
  - Diabetic neuropathy [Unknown]

NARRATIVE: CASE EVENT DATE: 20060127
